FAERS Safety Report 8389093-7 (Version None)
Quarter: 2012Q2

REPORT INFORMATION
  Report Type: 
  Country: None (occurrence: None)
  Receive Date: 20120528
  Receipt Date: 20120521
  Transmission Date: 20120825
  Serious: Yes (Hospitalization)
  Sender: FDA-Public Use
  Company Number: PHFR2012GB002715

PATIENT
  Sex: Male

DRUGS (2)
  1. CLOZARIL [Suspect]
     Indication: SCHIZOPHRENIA
     Dosage: 350 MG, DAILY
     Route: 048
     Dates: start: 20070927
  2. ATENOLOL [Concomitant]
     Dosage: 25 MG, DAILY
     Route: 048

REACTIONS (2)
  - BONE DISORDER [None]
  - LOWER LIMB FRACTURE [None]
